FAERS Safety Report 5496667-X (Version None)
Quarter: 2007Q4

REPORT INFORMATION
  Report Type: 
  Country: None (occurrence: None)
  Receive Date: 20071025
  Receipt Date: 20070629
  Transmission Date: 20080405
  Serious: No
  Sender: FDA-Public Use
  Company Number: A0661002A

PATIENT
  Age: 81 Year
  Sex: Male

DRUGS (5)
  1. ADVAIR DISKUS 100/50 [Suspect]
     Route: 055
     Dates: start: 20070101
  2. FLONASE [Suspect]
     Indication: POSTNASAL DRIP
     Route: 045
  3. UNSPECIFIED ANTIBIOTIC [Suspect]
  4. DIOVAN [Concomitant]
  5. VITAMIN [Concomitant]

REACTIONS (4)
  - HYPERSENSITIVITY [None]
  - PAIN [None]
  - PARAESTHESIA [None]
  - PRURITUS [None]
